FAERS Safety Report 16413323 (Version 2)
Quarter: 2019Q2

REPORT INFORMATION
  Report Type: Spontaneous
  Country: US (occurrence: US)
  Receive Date: 20190611
  Receipt Date: 20190621
  Transmission Date: 20190711
  Serious: Yes (Other)
  Sender: FDA-Public Use
  Company Number: US-ASTRAZENECA-2018SF01082

PATIENT
  Age: 652 Month

DRUGS (20)
  1. NEXIUM [Suspect]
     Active Substance: ESOMEPRAZOLE MAGNESIUM
     Route: 048
     Dates: start: 200601, end: 201612
  2. FLUTICASONE PROPIONATE. [Concomitant]
     Active Substance: FLUTICASONE PROPIONATE
  3. VENTOLIN [Concomitant]
     Active Substance: ALBUTEROL SULFATE
  4. NEXIUM [Suspect]
     Active Substance: ESOMEPRAZOLE MAGNESIUM
     Route: 048
     Dates: start: 20060101, end: 20161231
  5. PRILOSEC [Suspect]
     Active Substance: OMEPRAZOLE MAGNESIUM
     Route: 048
     Dates: start: 200601, end: 201612
  6. CLONAZEPAM. [Concomitant]
     Active Substance: CLONAZEPAM
  7. HYDROCORTISONE. [Concomitant]
     Active Substance: HYDROCORTISONE
  8. SPIRIVA [Concomitant]
     Active Substance: TIOTROPIUM BROMIDE MONOHYDRATE
  9. PRILOSEC [Suspect]
     Active Substance: OMEPRAZOLE MAGNESIUM
     Route: 048
     Dates: start: 20060101, end: 20161231
  10. PRILOSEC OTC [Suspect]
     Active Substance: OMEPRAZOLE MAGNESIUM
     Route: 048
     Dates: start: 200601, end: 201612
  11. DULOXETINE. [Concomitant]
     Active Substance: DULOXETINE
  12. LYRICA [Concomitant]
     Active Substance: PREGABALIN
  13. TRAMADOL. [Concomitant]
     Active Substance: TRAMADOL
  14. PRILOSEC OTC [Suspect]
     Active Substance: OMEPRAZOLE MAGNESIUM
     Route: 048
     Dates: start: 20060101, end: 20161231
  15. ALBUTEROL SULFATE. [Concomitant]
     Active Substance: ALBUTEROL SULFATE
  16. TRIAMCINOLONE ACETONIDE. [Concomitant]
     Active Substance: TRIAMCINOLONE ACETONIDE
  17. ATORVASTATIN CALCIUM. [Concomitant]
     Active Substance: ATORVASTATIN CALCIUM
  18. CELEXA [Concomitant]
     Active Substance: CITALOPRAM HYDROBROMIDE
  19. SYMBICORT [Concomitant]
     Active Substance: BUDESONIDE\FORMOTEROL FUMARATE DIHYDRATE
  20. ZIPRASIDONE. [Concomitant]
     Active Substance: ZIPRASIDONE

REACTIONS (6)
  - Chronic kidney disease [Unknown]
  - Acute kidney injury [Unknown]
  - End stage renal disease [Unknown]
  - Renal injury [Unknown]
  - Dyspepsia [Unknown]
  - Tubulointerstitial nephritis [Unknown]

NARRATIVE: CASE EVENT DATE: 201609
